FAERS Safety Report 6043393-4 (Version None)
Quarter: 2009Q1

REPORT INFORMATION
  Report Type: 
  Country: None (occurrence: None)
  Receive Date: 20090115
  Receipt Date: 20081230
  Transmission Date: 20090719
  Serious: Yes (Hospitalization)
  Sender: FDA-Public Use
  Company Number: POMP-1000443

PATIENT
  Age: 16 Month
  Sex: Male

DRUGS (1)
  1. MYOZYME [Suspect]
     Indication: GLYCOGEN STORAGE DISEASE TYPE II
     Dosage: 180 MG, Q2W, INTRAVENOUS
     Route: 042

REACTIONS (14)
  - AGITATION [None]
  - ANTIBODY TEST POSITIVE [None]
  - ATRIAL SEPTAL DEFECT [None]
  - DISCOMFORT [None]
  - EXTERNAL EAR CELLULITIS [None]
  - HEART RATE INCREASED [None]
  - HYPERHIDROSIS [None]
  - HYPERTROPHIC CARDIOMYOPATHY [None]
  - INFUSION RELATED REACTION [None]
  - MITRAL VALVE INCOMPETENCE [None]
  - NO THERAPEUTIC RESPONSE [None]
  - PERICARDIAL EFFUSION [None]
  - SCRATCH [None]
  - STAPHYLOCOCCAL INFECTION [None]
